FAERS Safety Report 7794319-4 (Version None)
Quarter: 2011Q4

REPORT INFORMATION
  Report Type: 
  Country: None (occurrence: None)
  Receive Date: 20111004
  Receipt Date: 20111003
  Transmission Date: 20120403
  Serious: Yes (Life-Threatening, Other)
  Sender: FDA-Public Use
  Company Number: JP-PFIZER INC-2011229082

PATIENT
  Age: 55 Year

DRUGS (1)
  1. VARENICLINE TARTRATE [Suspect]
     Indication: SMOKING CESSATION THERAPY
     Dosage: UNK
     Route: 048
     Dates: start: 20110507, end: 20110101

REACTIONS (2)
  - ALTERED STATE OF CONSCIOUSNESS [None]
  - ROAD TRAFFIC ACCIDENT [None]
